FAERS Safety Report 5653829-6 (Version None)
Quarter: 2008Q1

REPORT INFORMATION
  Report Type: 
  Country: None (occurrence: None)
  Receive Date: 20080306
  Receipt Date: 20080226
  Transmission Date: 20080703
  Serious: Yes (Hospitalization)
  Sender: FDA-Public Use
  Company Number: IT-WYE-H02934608

PATIENT
  Sex: Male

DRUGS (6)
  1. AMIODAR [Suspect]
     Indication: ATRIAL FIBRILLATION
     Dosage: 1 UNIT EVERY 1 DAY;  CUMULATIVE DOSE TO EVENT: 292 UNIT
     Route: 048
     Dates: start: 20070115, end: 20071102
  2. GLUCOPHAGE [Concomitant]
     Indication: DIABETES MELLITUS
     Dosage: UNKNOWN
     Route: 048
  3. COVERSYL [Concomitant]
     Indication: ESSENTIAL HYPERTENSION
     Dosage: UNKNOWN
     Route: 065
     Dates: start: 20070115, end: 20071102
  4. LASITONE [Concomitant]
     Indication: ESSENTIAL HYPERTENSION
     Dosage: UNKNOWN
     Route: 048
     Dates: start: 20070115, end: 20071102
  5. DILATREND [Concomitant]
     Dosage: UNKNOWN
     Route: 065
     Dates: start: 20070115, end: 20071102
  6. ATORVASTATIN CALCIUM [Concomitant]
     Indication: HYPERTRIGLYCERIDAEMIA

REACTIONS (4)
  - ACUTE PULMONARY OEDEMA [None]
  - PNEUMONIA [None]
  - PULMONARY FIBROSIS [None]
  - RENAL FAILURE ACUTE [None]
